FAERS Safety Report 9961149 (Version 1)
Quarter: 2014Q1

REPORT INFORMATION
  Report Type: Spontaneous
  Country: US (occurrence: None)
  Receive Date: 20140127
  Receipt Date: 20140127
  Transmission Date: 20141002
  Serious: Yes (Death)
  Sender: FDA-Public Use
  Company Number: 1209710

PATIENT
  Age: 49 Year
  Sex: Male

DRUGS (1)
  1. ACTILYSE [Suspect]
     Indication: BASILAR ARTERY THROMBOSIS

REACTIONS (2)
  - Cerebral haematoma [None]
  - Drug ineffective [None]
